FAERS Safety Report 8230731-7 (Version None)
Quarter: 2012Q1

REPORT INFORMATION
  Report Type: 
  Country: None (occurrence: None)
  Receive Date: 20120323
  Receipt Date: 20120316
  Transmission Date: 20120608
  Serious: Yes (Other)
  Sender: FDA-Public Use
  Company Number: IT-JNJFOC-20120308432

PATIENT
  Age: 41 Year
  Sex: Male

DRUGS (6)
  1. ENTUMIN [Suspect]
     Indication: PRODUCT USED FOR UNKNOWN INDICATION
     Dosage: DOSAGE AND FREQUENCY UNSPECIFIED
     Route: 048
     Dates: start: 20120316, end: 20120316
  2. CLONAZEPAM [Suspect]
     Indication: PRODUCT USED FOR UNKNOWN INDICATION
     Route: 048
     Dates: start: 20120316, end: 20120316
  3. HALDOL [Suspect]
     Indication: ILL-DEFINED DISORDER
     Route: 048
     Dates: start: 20120316, end: 20120316
  4. HALDOL [Suspect]
     Route: 048
     Dates: end: 20120228
  5. HALDOL [Suspect]
     Indication: SELF INJURIOUS BEHAVIOUR
     Route: 048
     Dates: start: 20120316, end: 20120316
  6. HALDOL [Suspect]
     Route: 048
     Dates: end: 20120228

REACTIONS (1)
  - SELF INJURIOUS BEHAVIOUR [None]
